FAERS Safety Report 8708887 (Version 2)
Quarter: 2012Q4

REPORT INFORMATION
  Report Type: 
  Country: FR (occurrence: FR)
  Receive Date: 20120806
  Receipt Date: 20120912
  Transmission Date: 20130627
  Serious: Yes (Death)
  Sender: FDA-Public Use
  Company Number: FR-ROCHE-1095719

PATIENT
  Age: 54 None
  Sex: Female

DRUGS (9)
  1. MABTHERA [Suspect]
     Indication: RHEUMATOID ARTHRITIS
     Route: 042
     Dates: start: 20100505, end: 201104
  2. MABTHERA [Suspect]
     Route: 042
     Dates: start: 201104, end: 201104
  3. HUMIRA [Suspect]
     Indication: RHEUMATOID ARTHRITIS
     Route: 058
     Dates: start: 200610, end: 20100520
  4. HUMIRA [Suspect]
     Route: 065
     Dates: start: 201104
  5. ENBREL [Suspect]
     Indication: RHEUMATOID ARTHRITIS
     Route: 058
     Dates: start: 200512, end: 200610
  6. NOVATREX (METHOTREXATE) [Suspect]
     Indication: RHEUMATOID ARTHRITIS
     Route: 048
     Dates: start: 1997, end: 201108
  7. NOVATREX (METHOTREXATE) [Suspect]
     Route: 065
     Dates: start: 1999, end: 201108
  8. LEVOTHYROX [Concomitant]
  9. ALDACTONE [Concomitant]

REACTIONS (5)
  - Mixed hepatocellular cholangiocarcinoma [Fatal]
  - Hepatic fibrosis [None]
  - Metastases to lung [None]
  - Metastases to liver [None]
  - Metastases to bone [None]
